FAERS Safety Report 5772846-9 (Version None)
Quarter: 2008Q2

REPORT INFORMATION
  Report Type: 
  Country: None (occurrence: None)
  Receive Date: 20080611
  Receipt Date: 20080603
  Transmission Date: 20081010
  Serious: Yes (Death, Other)
  Sender: FDA-Public Use
  Company Number: 163-21880-08030595

PATIENT
  Age: 47 Year
  Sex: Male

DRUGS (4)
  1. REVLIMID [Suspect]
     Indication: MULTIPLE MYELOMA
     Dosage: 15 MG, DAILY X21 DAYS, ORAL; 25 MG, DAILY X21 DAYS, ORAL
     Route: 048
     Dates: start: 20080121, end: 20080201
  2. REVLIMID [Suspect]
     Indication: MULTIPLE MYELOMA
     Dosage: 15 MG, DAILY X21 DAYS, ORAL; 25 MG, DAILY X21 DAYS, ORAL
     Route: 048
     Dates: start: 20080311
  3. BLOOD TRANSFUSION (BLOOD AND RELATED PRODUCTS) [Concomitant]
  4. VELCADE [Concomitant]

REACTIONS (8)
  - BONE MARROW FAILURE [None]
  - CEREBRAL HAEMORRHAGE [None]
  - DYSPHONIA [None]
  - EPISTAXIS [None]
  - MULTIPLE MYELOMA [None]
  - MUSCLE SPASMS [None]
  - RENAL FAILURE [None]
  - TUMOUR LYSIS SYNDROME [None]
